FAERS Safety Report 20328475 (Version 1)
Quarter: 2022Q1

REPORT INFORMATION
  Report Type: Spontaneous
  Country: US (occurrence: None)
  Receive Date: 20220112
  Receipt Date: 20220112
  Transmission Date: 20220423
  Serious: No
  Sender: FDA-Public Use
  Company Number: None

PATIENT
  Age: 65 Year
  Sex: Male

DRUGS (1)
  1. HYDROMORPHONE [Suspect]
     Active Substance: HYDROMORPHONE
     Indication: Pain
     Dosage: FREQUENCY : ONCE;?
     Route: 042
     Dates: start: 20211027, end: 20211027

REACTIONS (4)
  - Generalised tonic-clonic seizure [None]
  - Hypotension [None]
  - Bradycardia [None]
  - Postictal state [None]

NARRATIVE: CASE EVENT DATE: 20211027
